FAERS Safety Report 21972619 (Version 1)
Quarter: 2023Q1

REPORT INFORMATION
  Report Type: Spontaneous
  Country: JP (occurrence: JP)
  Receive Date: 20230209
  Receipt Date: 20230209
  Transmission Date: 20230418
  Serious: Yes (Life-Threatening, Hospitalization)
  Sender: FDA-Public Use
  Company Number: JP-PFIZER INC-202300050516

PATIENT
  Age: 36 Year
  Sex: Male

DRUGS (1)
  1. CORTRIL [Suspect]
     Active Substance: HYDROCORTISONE
     Dosage: 20 MG, DAILY
     Route: 048

REACTIONS (3)
  - Coronavirus infection [Recovered/Resolved]
  - Blood pressure decreased [Recovered/Resolved]
  - Pulse abnormal [Recovered/Resolved]
